FAERS Safety Report 21667728 (Version 1)
Quarter: 2022Q4

REPORT INFORMATION
  Report Type: Spontaneous
  Country: US (occurrence: US)
  Receive Date: 20221201
  Receipt Date: 20221201
  Transmission Date: 20230113
  Serious: No
  Sender: FDA-Public Use
  Company Number: US-009507513-2211USA001047

PATIENT

DRUGS (1)
  1. PREVYMIS [Suspect]
     Active Substance: LETERMOVIR
     Dosage: 480 MILLIGRAM, DAILY
     Route: 048

REACTIONS (4)
  - Product availability issue [Unknown]
  - Product prescribing issue [Unknown]
  - Product dose omission issue [Unknown]
  - No adverse event [Unknown]
